FAERS Safety Report 13978117 (Version 3)
Quarter: 2017Q4

REPORT INFORMATION
  Report Type: Spontaneous
  Country: CA (occurrence: CA)
  Receive Date: 20170915
  Receipt Date: 20171016
  Transmission Date: 20180321
  Serious: Yes (Other)
  Sender: FDA-Public Use
  Company Number: CA-ACTELION-A-US2017-159543

PATIENT
  Age: 56 Year
  Sex: Female

DRUGS (11)
  1. SYNTHROID [Concomitant]
     Active Substance: LEVOTHYROXINE SODIUM
  2. PANTOLOC [Concomitant]
     Active Substance: PANTOPRAZOLE SODIUM
     Dosage: 40 MG, UNK
  3. VITAMIN D3 [Concomitant]
     Active Substance: CHOLECALCIFEROL
     Dosage: 10000 U, Q1WEEK
     Dates: start: 2012
  4. ADCIRCA [Concomitant]
     Active Substance: TADALAFIL
     Dosage: 40 MG, QD
     Dates: start: 20160419
  5. BISOPROLOL [Concomitant]
     Active Substance: BISOPROLOL
     Dosage: 25 MG, UNK
     Dates: start: 2012
  6. FERROUS SULFATE. [Concomitant]
     Active Substance: FERROUS SULFATE
     Dosage: 300 MG, UNK
     Dates: start: 2012
  7. RAMIPRIL. [Concomitant]
     Active Substance: RAMIPRIL
     Dosage: 10 MG, QD
     Dates: start: 2004
  8. OPSUMIT [Suspect]
     Active Substance: MACITENTAN
     Indication: PULMONARY ARTERIAL HYPERTENSION
     Dosage: 10 MG, QD
     Route: 048
     Dates: start: 20170508, end: 20170522
  9. LEVOTHYROXINE. [Concomitant]
     Active Substance: LEVOTHYROXINE
     Dosage: 88 MG, UNK
  10. FUROSEMIDE. [Concomitant]
     Active Substance: FUROSEMIDE
     Dosage: 20 MG, UNK
     Dates: start: 2004
  11. AAS [Concomitant]
     Active Substance: ASPIRIN
     Dosage: 80 MG, UNK
     Dates: start: 2012

REACTIONS (5)
  - Thinking abnormal [Recovered/Resolved]
  - Panic attack [Recovered/Resolved]
  - Psychotic disorder [Recovered/Resolved]
  - Insomnia [Recovered/Resolved]
  - Anxiety [Recovered/Resolved]

NARRATIVE: CASE EVENT DATE: 20170509
